FAERS Safety Report 7929903-8 (Version None)
Quarter: 2011Q4

REPORT INFORMATION
  Report Type: 
  Country: None (occurrence: None)
  Receive Date: 20111121
  Receipt Date: 20111115
  Transmission Date: 20120403
  Serious: Yes (Other)
  Sender: FDA-Public Use
  Company Number: PHEH2010US03512

PATIENT
  Sex: Female

DRUGS (7)
  1. HERCEPTIN [Concomitant]
  2. PREVACID [Concomitant]
  3. ZOFRAN [Concomitant]
  4. ATIVAN [Concomitant]
  5. DECADRON [Concomitant]
  6. MORPHINE [Concomitant]
  7. ZOMETA [Suspect]
     Indication: NEOPLASM MALIGNANT

REACTIONS (14)
  - IMPAIRED HEALING [None]
  - EXPOSED BONE IN JAW [None]
  - PAIN [None]
  - FACIAL PAIN [None]
  - INSOMNIA [None]
  - DIARRHOEA [None]
  - OSTEONECROSIS OF JAW [None]
  - OSTEOMYELITIS [None]
  - DEFORMITY [None]
  - PAIN IN JAW [None]
  - OVERDOSE [None]
  - INFECTION [None]
  - OROPHARYNGEAL BLISTERING [None]
  - GINGIVAL DISORDER [None]
